FAERS Safety Report 14217415 (Version 2)
Quarter: 2017Q4

REPORT INFORMATION
  Report Type: Report from Study
  Country: None (occurrence: US)
  Receive Date: 20171123
  Receipt Date: 20171219
  Transmission Date: 20180321
  Serious: Yes (Hospitalization)
  Sender: FDA-Public Use
  Company Number: US-ABBVIE-17K-163-1920354-00

PATIENT
  Age: 48 Year
  Sex: Male
  Weight: 124.4 kg

DRUGS (4)
  1. HUMIRA [Suspect]
     Active Substance: ADALIMUMAB
     Route: 058
     Dates: start: 20171031
  2. LISINOPRIL. [Concomitant]
     Active Substance: LISINOPRIL
     Indication: HYPERTENSION
  3. HUMIRA [Suspect]
     Active Substance: ADALIMUMAB
     Indication: CROHN^S DISEASE
     Route: 058
     Dates: start: 2015, end: 201611
  4. HUMIRA [Suspect]
     Active Substance: ADALIMUMAB
     Route: 058
     Dates: start: 201611, end: 201710

REACTIONS (13)
  - Crohn^s disease [Recovered/Resolved]
  - Insomnia [Recovered/Resolved]
  - Injection site pain [Unknown]
  - Gastrointestinal inflammation [Recovered/Resolved]
  - Abdominal pain [Unknown]
  - Hepatic enzyme increased [Unknown]
  - Abdominal adhesions [Unknown]
  - Abdominal distension [Unknown]
  - Vomiting [Unknown]
  - Stress [Recovered/Resolved]
  - Therapeutic response shortened [Unknown]
  - Weight decreased [Unknown]
  - Crohn^s disease [Unknown]

NARRATIVE: CASE EVENT DATE: 2017
